FAERS Safety Report 5249021-X (Version None)
Quarter: 2007Q1

REPORT INFORMATION
  Report Type: 
  Country: None (occurrence: None)
  Receive Date: 20070228
  Receipt Date: 20060530
  Transmission Date: 20070707
  Serious: No
  Sender: FDA-Public Use
  Company Number: US-GLAXOSMITHKLINE-A0607287A

PATIENT
  Age: 25 Year
  Sex: Female

DRUGS (1)
  1. VALTREX [Suspect]
     Route: 048
     Dates: start: 20030101, end: 20030101

REACTIONS (2)
  - BLOOD HIV RNA BELOW ASSAY LIMIT [None]
  - THERAPEUTIC RESPONSE UNEXPECTED [None]
